FAERS Safety Report 5904844-6 (Version None)
Quarter: 2008Q4

REPORT INFORMATION
  Report Type: 
  Country: None (occurrence: None)
  Receive Date: 20081001
  Receipt Date: 20080926
  Transmission Date: 20090506
  Serious: Yes (Death)
  Sender: FDA-Public Use
  Company Number: A0715877A

PATIENT
  Age: 53 Year
  Sex: Male
  Weight: 78.2 kg

DRUGS (2)
  1. AVANDIA [Suspect]
     Route: 048
     Dates: end: 20070817
  2. JANUVIA [Concomitant]
     Dates: start: 20070817, end: 20070824

REACTIONS (1)
  - MYOCARDIAL INFARCTION [None]
